FAERS Safety Report 9124283 (Version 1)
Quarter: 2013Q1

REPORT INFORMATION
  Report Type: Spontaneous
  Country: BR (occurrence: BR)
  Receive Date: 20130227
  Receipt Date: 20130227
  Transmission Date: 20140127
  Serious: Yes (Other)
  Sender: FDA-Public Use
  Company Number: PHHY2013BR018720

PATIENT
  Sex: Female

DRUGS (2)
  1. STALEVO [Suspect]
     Indication: TREMOR
     Dosage: UNK UKN, UNK (CONCENTRATION OF 200/100/25)
     Route: 048
  2. STALEVO [Suspect]
     Dosage: UNK UKN, UNK (CONCENTRACION OF 150/37.5/200)
     Route: 048

REACTIONS (2)
  - Cerebrovascular accident [Unknown]
  - Drug ineffective [Unknown]
